FAERS Safety Report 6480630-6 (Version None)
Quarter: 2009Q4

REPORT INFORMATION
  Report Type: 
  Country: None (occurrence: None)
  Receive Date: 20091208
  Receipt Date: 20091208
  Transmission Date: 20100525
  Serious: Yes (Other)
  Sender: FDA-Public Use
  Company Number: US-PFIZER INC-2009287935

PATIENT
  Sex: Female
  Weight: 58.503 kg

DRUGS (1)
  1. LIPITOR [Suspect]
     Indication: STENT PLACEMENT
     Dosage: 20 MG, DAILY
     Route: 048
     Dates: start: 20050101

REACTIONS (7)
  - BACK PAIN [None]
  - CORONARY ARTERY RESTENOSIS [None]
  - INTERVERTEBRAL DISC PROTRUSION [None]
  - MUSCULAR WEAKNESS [None]
  - PAIN IN EXTREMITY [None]
  - ROAD TRAFFIC ACCIDENT [None]
  - ROTATOR CUFF SYNDROME [None]
